FAERS Safety Report 8698480 (Version 7)
Quarter: 2012Q4

REPORT INFORMATION
  Report Type: Report from Study
  Country: DE (occurrence: DE)
  Receive Date: 20120802
  Receipt Date: 20121101
  Transmission Date: 20130627
  Serious: Yes (Hospitalization, Other)
  Sender: FDA-Public Use
  Company Number: DE-PFIZER INC-2012183655

PATIENT
  Age: 50 Year
  Sex: Male
  Weight: 73 kg

DRUGS (5)
  1. IDARUBICIN [Suspect]
     Dosage: 22.56 mg, UNK
     Dates: start: 20120719
  2. CYTARABINE [Suspect]
     Dosage: 188 mg, UNK
     Dates: start: 20120719
  3. ETOPOSIDE [Suspect]
     Dosage: 188 mg, UNK
     Dates: start: 20120719
  4. TRETINOIN [Suspect]
     Dosage: 90 mg, UNK
     Dates: start: 20120725, end: 20120821
  5. PEGFILGRASTIM [Concomitant]
     Dosage: 1 DF, daily
     Dates: start: 20120804, end: 20120804

REACTIONS (4)
  - Neutropenic colitis [Recovered/Resolved]
  - Pneumonia [Recovered/Resolved]
  - Pneumonia fungal [None]
  - Pleural effusion [None]
